FAERS Safety Report 14862028 (Version 1)
Quarter: 2018Q2

REPORT INFORMATION
  Report Type: Spontaneous
  Country: US (occurrence: US)
  Receive Date: 20180507
  Receipt Date: 20180507
  Transmission Date: 20180711
  Serious: Yes (Disabling, Other)
  Sender: FDA-Public Use
  Company Number: None

PATIENT
  Age: 81 Year
  Sex: Female
  Weight: 55.8 kg

DRUGS (1)
  1. CIPROFLOXACIN TABLETS 500MG [Suspect]
     Active Substance: CIPROFLOXACIN
     Indication: CYSTITIS
     Dosage: ?          QUANTITY:1 TABLET(S);?
     Route: 048
     Dates: start: 20170713, end: 20180401

REACTIONS (6)
  - Musculoskeletal pain [None]
  - Dizziness [None]
  - Ocular hyperaemia [None]
  - Diarrhoea [None]
  - Hallucination [None]
  - Vision blurred [None]

NARRATIVE: CASE EVENT DATE: 20180402
